FAERS Safety Report 6545630-6 (Version None)
Quarter: 2010Q1

REPORT INFORMATION
  Report Type: 
  Country: None (occurrence: None)
  Receive Date: 20100121
  Receipt Date: 20100115
  Transmission Date: 20100710
  Serious: Yes (Other)
  Sender: FDA-Public Use
  Company Number: ES-B.I. PHARMACEUTICALS,INC./RIDGEFIELD-2010-BP-00653YA

PATIENT
  Sex: Male

DRUGS (2)
  1. OMNIC OCAS ORODISPERSABLE [Suspect]
     Route: 048
  2. VESICARE [Suspect]
     Route: 048

REACTIONS (1)
  - URINARY RETENTION [None]
